FAERS Safety Report 8381645-3 (Version None)
Quarter: 2012Q2

REPORT INFORMATION
  Report Type: 
  Country: None (occurrence: None)
  Receive Date: 20120524
  Receipt Date: 20120510
  Transmission Date: 20120825
  Serious: No
  Sender: FDA-Public Use
  Company Number: US-ASTRAZENECA-2012SE30193

PATIENT
  Age: 78 Year
  Sex: Female
  Weight: 63.5 kg

DRUGS (3)
  1. CARBIDOPA [Suspect]
     Indication: PARKINSON'S DISEASE
     Route: 065
  2. LEVODOPA [Suspect]
     Indication: PARKINSON'S DISEASE
     Route: 065
  3. NEXIUM [Suspect]
     Indication: GASTROOESOPHAGEAL REFLUX DISEASE
     Route: 048
     Dates: start: 20120427

REACTIONS (5)
  - CONSTIPATION [None]
  - NERVOUSNESS [None]
  - DRUG INTERACTION [None]
  - ASTHENIA [None]
  - PARKINSON'S DISEASE [None]
